FAERS Safety Report 9728734 (Version 1)
Quarter: 2013Q4

REPORT INFORMATION
  Report Type: Spontaneous
  Country: US (occurrence: US)
  Receive Date: 20131204
  Receipt Date: 20131204
  Transmission Date: 20140711
  Serious: No
  Sender: FDA-Public Use
  Company Number: US-PFIZER INC-2013341159

PATIENT
  Age: 30 Year
  Sex: Female
  Weight: 43.08 kg

DRUGS (4)
  1. AZITHROMYCIN [Suspect]
     Indication: BACTERIAL INFECTION
     Dosage: UNK
     Dates: start: 2013, end: 20131124
  2. METRONIDAZOLE [Suspect]
     Indication: BACTERIAL INFECTION
     Dosage: UNK
     Dates: start: 2013, end: 20131124
  3. CIPRO [Suspect]
     Indication: BACTERIAL INFECTION
     Dosage: UNK
     Dates: start: 2013, end: 20131124
  4. BACTRIM [Suspect]
     Indication: BACTERIAL INFECTION
     Dosage: UNK
     Dates: start: 2013, end: 20131124

REACTIONS (1)
  - Drug ineffective [Unknown]
